FAERS Safety Report 8013543-9 (Version None)
Quarter: 2011Q4

REPORT INFORMATION
  Report Type: 
  Country: None (occurrence: None)
  Receive Date: 20111229
  Receipt Date: 20111220
  Transmission Date: 20120403
  Serious: Yes (Other)
  Sender: FDA-Public Use
  Company Number: JP-PFIZER INC-2011307253

PATIENT
  Age: 81 Year
  Sex: Female

DRUGS (3)
  1. NEO-MEDROL [Suspect]
     Indication: BLEPHARITIS
     Dosage: UNK
     Route: 003
     Dates: start: 20111124, end: 20111216
  2. NEO-MEDROL [Suspect]
     Dosage: UNK
     Dates: start: 20111216, end: 20111217
  3. LIVOSTIN [Concomitant]
     Indication: CONJUNCTIVITIS ALLERGIC
     Dosage: UNK
     Route: 047
     Dates: start: 20111124, end: 20111216

REACTIONS (1)
  - DEAFNESS [None]
